FAERS Safety Report 6974098-0 (Version None)
Quarter: 2010Q3

REPORT INFORMATION
  Report Type: 
  Country: None (occurrence: None)
  Receive Date: 20100909
  Receipt Date: 20100830
  Transmission Date: 20110219
  Serious: Yes (Hospitalization)
  Sender: FDA-Public Use
  Company Number: SE-B.I. PHARMACEUTICALS,INC./RIDGEFIELD-2010-SW-00265SW

PATIENT
  Sex: Male

DRUGS (13)
  1. SIFROL TAB. 0.18 MG [Suspect]
     Dosage: 0.5 MG
     Route: 048
  2. STALEVO 100 [Suspect]
     Indication: PARKINSONISM
     Dosage: STRENGTH: 125 MG/31,25 MG/200
     Route: 048
     Dates: start: 20071003, end: 20100701
  3. WARAN [Suspect]
     Route: 048
  4. ENALAPRIL ACTAVIS [Suspect]
     Route: 048
     Dates: end: 20100705
  5. AVODART [Concomitant]
  6. CRESTOR [Concomitant]
  7. NULYTELY [Concomitant]
  8. PLAVIX [Concomitant]
  9. NITROMEX [Concomitant]
  10. ACETAMINOPHEN [Concomitant]
  11. LAXOBERAL [Concomitant]
  12. CLOZAPINE ACTAVIS [Concomitant]
  13. ZOPIKLON MYLAN [Concomitant]

REACTIONS (4)
  - BLOOD CREATININE INCREASED [None]
  - CONFUSIONAL STATE [None]
  - HALLUCINATION [None]
  - PROTHROMBIN LEVEL DECREASED [None]
